FAERS Safety Report 5030368-7 (Version None)
Quarter: 2006Q2

REPORT INFORMATION
  Report Type: 
  Country: None (occurrence: None)
  Receive Date: 20060615
  Receipt Date: 20060607
  Transmission Date: 20061013
  Serious: Yes (Hospitalization)
  Sender: FDA-Public Use
  Company Number: 200611422BWH

PATIENT
  Age: 79 Year
  Sex: Male

DRUGS (7)
  1. NEXAVAR [Suspect]
     Indication: RENAL CELL CARCINOMA STAGE UNSPECIFIED
     Dosage: 400 MG, BID, ORAL; SEE IMAGE
     Route: 048
     Dates: start: 20060108, end: 20060125
  2. NEXAVAR [Suspect]
     Indication: RENAL CELL CARCINOMA STAGE UNSPECIFIED
     Dosage: 400 MG, BID, ORAL; SEE IMAGE
     Route: 048
     Dates: start: 20060213, end: 20060224
  3. NORVASC [Concomitant]
  4. DURAGESIC-100 [Concomitant]
  5. LISINOPRIL W/HYDROCHLOROTHIAZIDE [Concomitant]
  6. ZETIA [Concomitant]
  7. ATIVAN [Concomitant]

REACTIONS (1)
  - PNEUMATOSIS INTESTINALIS [None]
